FAERS Safety Report 19854883 (Version 2)
Quarter: 2021Q3

REPORT INFORMATION
  Report Type: Report from Study
  Country: CA (occurrence: CA)
  Receive Date: 20210920
  Receipt Date: 20210923
  Transmission Date: 20211014
  Serious: Yes (Death, Hospitalization, Other)
  Sender: FDA-Public Use
  Company Number: CA-VIIV HEALTHCARE LIMITED-CA2021AMR198167

PATIENT
  Sex: Male

DRUGS (3)
  1. CABOTEGRAVIR + RILPIVIRINE [Suspect]
     Active Substance: CABOTEGRAVIR\RILPIVIRINE
  2. CABOTEGRAVIR + RILPIVIRINE [Suspect]
     Active Substance: CABOTEGRAVIR\RILPIVIRINE
     Indication: HIV INFECTION
     Dosage: UNK, Z (Q1M)
  3. CABOTEGRAVIR + RILPIVIRINE [Suspect]
     Active Substance: CABOTEGRAVIR\RILPIVIRINE
     Dosage: UNK (Q2M (ONCE EVERY TWO MONTHS ) FOR THE LAST 4 MONTHS)
     Dates: start: 202106

REACTIONS (2)
  - Thrombosis [Fatal]
  - COVID-19 [Fatal]
